FAERS Safety Report 5759421-7 (Version None)
Quarter: 2008Q2

REPORT INFORMATION
  Report Type: 
  Country: None (occurrence: None)
  Receive Date: 20080604
  Receipt Date: 20080604
  Transmission Date: 20081010
  Serious: Yes (Other)
  Sender: FDA-Public Use
  Company Number: None

PATIENT
  Age: 77 Year
  Sex: Female

DRUGS (2)
  1. CREST PRO HEALTH PROCTER AND GAMBLE [Suspect]
     Indication: DENTAL DISORDER PROPHYLAXIS
     Dosage: 1/2 CAP FULL TWICE A DAY
     Dates: start: 20080301, end: 20080506
  2. CREST PRO HEALTH PROCTER AND GAMBLE [Suspect]
     Indication: GINGIVITIS
     Dosage: 1/2 CAP FULL TWICE A DAY
     Dates: start: 20080301, end: 20080506

REACTIONS (3)
  - FEELING ABNORMAL [None]
  - LIP SWELLING [None]
  - ORAL PAIN [None]
